FAERS Safety Report 7338713-4 (Version None)
Quarter: 2011Q1

REPORT INFORMATION
  Report Type: 
  Country: None (occurrence: None)
  Receive Date: 20110308
  Receipt Date: 20110228
  Transmission Date: 20110831
  Serious: Yes (Life-Threatening)
  Sender: FDA-Public Use
  Company Number: B0694045A

PATIENT
  Sex: Male
  Weight: 57 kg

DRUGS (17)
  1. DECADRON [Concomitant]
     Indication: STEM CELL TRANSPLANT
     Dosage: 40MGM2 PER DAY
     Dates: start: 20090731, end: 20090803
  2. FUNGIZONE [Concomitant]
     Dosage: 3ML PER DAY
     Route: 048
     Dates: start: 20090731, end: 20090821
  3. LOXOPROFEN [Concomitant]
     Route: 048
  4. FUNGUARD [Suspect]
     Dosage: 150MG PER DAY
     Route: 042
     Dates: start: 20090817, end: 20090822
  5. GRANISETRON HCL [Concomitant]
     Dosage: 3MG PER DAY
     Route: 042
     Dates: start: 20090801, end: 20090803
  6. MYSLEE [Concomitant]
     Route: 048
  7. NEOLAMIN [Concomitant]
     Dosage: 250MCG PER DAY
     Route: 042
     Dates: start: 20090803, end: 20090813
  8. LASTET [Suspect]
     Indication: STEM CELL TRANSPLANT
     Dosage: 500MGM2 PER DAY
     Route: 042
     Dates: start: 20090731, end: 20090802
  9. ANTEBATE [Concomitant]
     Route: 061
     Dates: start: 20090814, end: 20090817
  10. ENDOXAN [Suspect]
     Indication: STEM CELL TRANSPLANT
     Dosage: 60MGK PER DAY
     Dates: start: 20090731, end: 20090801
  11. SOLU-CORTEF [Concomitant]
     Dosage: 100MG PER DAY
     Dates: start: 20090804, end: 20090804
  12. ALKERAN [Suspect]
     Indication: STEM CELL TRANSPLANT
     Dosage: 130MG PER DAY
     Route: 042
     Dates: start: 20090803, end: 20090803
  13. GASLON N [Concomitant]
     Dosage: 4MG PER DAY
     Route: 048
     Dates: start: 20090805, end: 20090910
  14. CRAVIT [Concomitant]
     Dosage: 300MG PER DAY
     Route: 048
     Dates: start: 20090805, end: 20090813
  15. BAKTAR [Concomitant]
     Route: 048
     Dates: start: 20090829
  16. NEUTROGIN [Concomitant]
     Dates: start: 20090806, end: 20090811
  17. GASPORT [Concomitant]
     Dosage: 20MG PER DAY
     Route: 048
     Dates: start: 20090805

REACTIONS (1)
  - PNEUMONIA [None]
